FAERS Safety Report 13075924 (Version 1)
Quarter: 2016Q4

REPORT INFORMATION
  Report Type: Spontaneous
  Country: US (occurrence: US)
  Receive Date: 20161230
  Receipt Date: 20161230
  Transmission Date: 20170207
  Serious: No
  Sender: FDA-Public Use
  Company Number: US-ASTRAZENECA-2014SE04170

PATIENT
  Age: 49 Year
  Sex: Male
  Weight: 136.1 kg

DRUGS (4)
  1. FARXIGA [Suspect]
     Active Substance: DAPAGLIFLOZIN PROPANEDIOL
     Indication: TYPE 2 DIABETES MELLITUS
     Route: 048
     Dates: start: 2016
  2. BYDUREON [Suspect]
     Active Substance: EXENATIDE
     Indication: TYPE 2 DIABETES MELLITUS
     Dosage: 2 MILLIGRAMS WEEKLY,  2MG VIAL + SYRINGE
     Route: 065
  3. LOVASTATIN. [Concomitant]
     Active Substance: LOVASTATIN
     Indication: BLOOD CHOLESTEROL ABNORMAL
     Dosage: DAILY
     Route: 048
  4. GLIPIZIDE. [Suspect]
     Active Substance: GLIPIZIDE
     Indication: TYPE 2 DIABETES MELLITUS
     Route: 048

REACTIONS (12)
  - Pollakiuria [Not Recovered/Not Resolved]
  - Injection site haemorrhage [Unknown]
  - Feeling abnormal [Unknown]
  - Urinary incontinence [Not Recovered/Not Resolved]
  - Blood glucose increased [Unknown]
  - Dry skin [Unknown]
  - Quality of life decreased [Not Recovered/Not Resolved]
  - Dehydration [Unknown]
  - Mental disorder due to a general medical condition [Not Recovered/Not Resolved]
  - Injection site extravasation [Unknown]
  - Bladder sphincter atony [Not Recovered/Not Resolved]
  - Frustration tolerance decreased [Not Recovered/Not Resolved]

NARRATIVE: CASE EVENT DATE: 2016
